FAERS Safety Report 9573676 (Version 1)
Quarter: 2013Q4

REPORT INFORMATION
  Report Type: Spontaneous
  Country: US (occurrence: US)
  Receive Date: 20131001
  Receipt Date: 20131001
  Transmission Date: 20140711
  Serious: No
  Sender: FDA-Public Use
  Company Number: US-PURDUE-USA-2012-0083564

PATIENT
  Sex: Male

DRUGS (1)
  1. BUTRANS [Suspect]
     Dosage: 5 MCG/HR, UNK
     Route: 062

REACTIONS (1)
  - Inadequate analgesia [Unknown]
